FAERS Safety Report 10529693 (Version 1)
Quarter: 2014Q4

REPORT INFORMATION
  Report Type: Spontaneous
  Country: TR (occurrence: TR)
  Receive Date: 20141021
  Receipt Date: 20141021
  Transmission Date: 20150528
  Serious: Yes (Hospitalization, Other)
  Sender: FDA-Public Use
  Company Number: TR-ALEXION PHARMACEUTICALS INC.-A201403930

PATIENT

DRUGS (1)
  1. SOLIRIS [Suspect]
     Active Substance: ECULIZUMAB
     Indication: HAEMOLYTIC URAEMIC SYNDROME
     Dosage: 300 MG, Q3W
     Route: 042
     Dates: start: 20140115

REACTIONS (3)
  - Aphthous stomatitis [Recovered/Resolved]
  - Acute tonsillitis [Recovered/Resolved]
  - Inappropriate schedule of drug administration [Not Recovered/Not Resolved]

NARRATIVE: CASE EVENT DATE: 20140115
